FAERS Safety Report 8990122 (Version 3)
Quarter: 2013Q1

REPORT INFORMATION
  Report Type: Spontaneous
  Country: GR (occurrence: GR)
  Receive Date: 20121228
  Receipt Date: 20130122
  Transmission Date: 20140127
  Serious: Yes (Other)
  Sender: FDA-Public Use
  Company Number: GR-JNJFOC-20121210537

PATIENT
  Age: 33 Year
  Sex: Male

DRUGS (5)
  1. REMICADE [Suspect]
     Indication: CROHN^S DISEASE
     Dosage: INITIATED APPROXIMATELY 5 YEARS AGO FROM THE DATE OF REPORT. 100 MG/VIAL
     Route: 042
  2. REMICADE [Suspect]
     Indication: CROHN^S DISEASE
     Dosage: LAST INFUSION
     Route: 042
     Dates: start: 20121214
  3. REMICADE [Suspect]
     Indication: CROHN^S DISEASE
     Dosage: INITIATED 1.5 YEARS PRIOR TO THE DATE OF REPORTING; (8 VIALS).
     Route: 042
     Dates: start: 2010
  4. STEROIDS NOS [Suspect]
     Indication: PRODUCT USED FOR UNKNOWN INDICATION
     Route: 065
  5. ZURCAZOL [Concomitant]
     Route: 065

REACTIONS (3)
  - Pancreatitis relapsing [Recovered/Resolved]
  - Skin disorder [Recovering/Resolving]
  - Fistula [Unknown]
